FAERS Safety Report 15385282 (Version 1)
Quarter: 2018Q3

REPORT INFORMATION
  Report Type: Spontaneous
  Country: ES (occurrence: ES)
  Receive Date: 20180914
  Receipt Date: 20180914
  Transmission Date: 20181010
  Serious: Yes (Life-Threatening, Hospitalization, Other)
  Sender: FDA-Public Use
  Company Number: PHHY2018ES090312

PATIENT
  Age: 52 Year
  Sex: Male

DRUGS (9)
  1. TOBRAMYCIN. [Suspect]
     Active Substance: TOBRAMYCIN
     Indication: PSEUDOMONAS INFECTION
     Dosage: 100 MG, TID
     Route: 042
  2. IMIPENEM [Concomitant]
     Active Substance: IMIPENEM
     Indication: NECROTISING SOFT TISSUE INFECTION
     Dosage: 1 G, TID
     Route: 065
  3. TOBRAMYCIN. [Suspect]
     Active Substance: TOBRAMYCIN
     Indication: POST PROCEDURAL INFECTION
     Dosage: 300 MG, QD
     Route: 065
  4. CEFTAZIDIME. [Concomitant]
     Active Substance: CEFTAZIDIME
     Indication: NECROTISING SOFT TISSUE INFECTION
  5. CIPROFLOXACIN. [Suspect]
     Active Substance: CIPROFLOXACIN
     Indication: PSEUDOMONAS INFECTION
     Dosage: UNK
     Route: 065
  6. CEFTAZIDIME. [Concomitant]
     Active Substance: CEFTAZIDIME
     Indication: PSEUDOMONAS INFECTION
     Dosage: 1 G, TID
     Route: 042
  7. CEFTAZIDIME. [Concomitant]
     Active Substance: CEFTAZIDIME
     Indication: POST PROCEDURAL INFECTION
  8. IMIPENEM AND CILASTATIN [Suspect]
     Active Substance: CILASTATIN SODIUM\IMIPENEM
     Indication: PSEUDOMONAS INFECTION
     Dosage: 1 G, TID
     Route: 065
  9. COLISTIN [Suspect]
     Active Substance: COLISTIN
     Indication: NECROTISING SOFT TISSUE INFECTION
     Dosage: 2 MILLION IU TID
     Route: 042

REACTIONS (6)
  - Acute kidney injury [Recovering/Resolving]
  - Hypersensitivity [Unknown]
  - Pathogen resistance [Unknown]
  - Hyperlactacidaemia [Recovering/Resolving]
  - Metabolic acidosis [Recovering/Resolving]
  - Respiratory arrest [Recovering/Resolving]
